FAERS Safety Report 9871618 (Version 2)
Quarter: 2014Q1

REPORT INFORMATION
  Report Type: Spontaneous
  Country: IT (occurrence: IT)
  Receive Date: 20140205
  Receipt Date: 20140320
  Transmission Date: 20141002
  Serious: Yes (Other)
  Sender: FDA-Public Use
  Company Number: IT-US-EMD SERONO, INC.-7266480

PATIENT
  Age: 35 Year
  Sex: Female

DRUGS (3)
  1. REBIF [Suspect]
     Indication: MULTIPLE SCLEROSIS
     Route: 058
     Dates: start: 20030401, end: 20130805
  2. REBIF [Suspect]
     Dates: start: 20130918
  3. BRUFEN /00109201/ [Suspect]
     Indication: HEADACHE
     Route: 048
     Dates: start: 20130101, end: 20131001

REACTIONS (3)
  - Neutropenia [Recovering/Resolving]
  - Cystitis [Not Recovered/Not Resolved]
  - Pyrexia [Not Recovered/Not Resolved]
